FAERS Safety Report 6121262-9 (Version None)
Quarter: 2009Q1

REPORT INFORMATION
  Report Type: 
  Country: None (occurrence: None)
  Receive Date: 20090312
  Receipt Date: 20090312
  Transmission Date: 20090719
  Serious: Yes (Other)
  Sender: FDA-Public Use
  Company Number: None

PATIENT
  Sex: Female
  Weight: 58.9676 kg

DRUGS (1)
  1. TRILYTE [Suspect]
     Indication: BOWEL PREPARATION
     Dosage: 8 OUNCES EVERY 10 MINUTES PO  (ONE DOSE)
     Route: 048
     Dates: start: 20090310, end: 20090310

REACTIONS (4)
  - HYPOTENSION [None]
  - PARAESTHESIA ORAL [None]
  - RASH [None]
  - URTICARIA [None]
